FAERS Safety Report 4380523-4 (Version None)
Quarter: 2004Q2

REPORT INFORMATION
  Report Type: 
  Country: None (occurrence: None)
  Receive Date: 20040614
  Receipt Date: 20040405
  Transmission Date: 20050107
  Serious: Yes (Death)
  Sender: FDA-Public Use
  Company Number: M04-341-108

PATIENT
  Age: 67 Year
  Sex: Female
  Weight: 69 kg

DRUGS (8)
  1. VELCADE [Suspect]
     Indication: MULTIPLE MYELOMA
     Dates: start: 20031006, end: 20040205
  2. CALCIUM [Concomitant]
  3. MICRO-K(POTASSIUM CHLORIDE) [Concomitant]
  4. PREMARIN [Concomitant]
  5. PREVACID [Concomitant]
  6. SLOW-MAG(MAGNESIUM CHLORIDE ANHYDROUS) [Concomitant]
  7. TENORETIC [Concomitant]
  8. XANAX [Concomitant]

REACTIONS (1)
  - DISEASE PROGRESSION [None]
